FAERS Safety Report 14476707 (Version 1)
Quarter: 2018Q1

REPORT INFORMATION
  Report Type: Report from Study
  Country: MX (occurrence: MX)
  Receive Date: 20180201
  Receipt Date: 20180201
  Transmission Date: 20180509
  Serious: Yes (Other)
  Sender: FDA-Public Use
  Company Number: PHHY2018MX017094

PATIENT
  Sex: Male
  Weight: 73 kg

DRUGS (4)
  1. MESALAZINE [Concomitant]
     Active Substance: MESALAMINE
     Indication: DIVERTICULUM GASTRIC
     Dosage: 2 DF, QD (ONE TABLET IN THE MORNING AND 1 AT NIGHT) (SINCE 1 YEAR AGO)
     Route: 048
  2. MENADIOL [Concomitant]
     Active Substance: MENADIOL
     Indication: DIABETES MELLITUS
     Dosage: 1 DF, QD (IN THE MORNING) (SINCE 1 YEAR AGO)
     Route: 048
  3. DIOVAN [Suspect]
     Active Substance: VALSARTAN
     Indication: HYPERTENSION
     Dosage: 3.5 DF, QD (2 TABLETS IN THE MORNING AND 1 ? IN THE NIGHT)
     Route: 048
  4. TAMSULOSIN [Concomitant]
     Active Substance: TAMSULOSIN
     Indication: PROSTATIC DISORDER
     Dosage: 1 DF, QD (SINCE 4 YEARS AGO)
     Route: 048

REACTIONS (6)
  - Parkinson^s disease [Unknown]
  - Rheumatic disorder [Unknown]
  - Anal haemorrhage [Recovered/Resolved]
  - Wrong technique in product usage process [Not Recovered/Not Resolved]
  - Fluid retention [Unknown]
  - Drug prescribing error [Not Recovered/Not Resolved]
